FAERS Safety Report 4629695-4 (Version None)
Quarter: 2005Q1

REPORT INFORMATION
  Report Type: 
  Country: None (occurrence: None)
  Receive Date: 20050107
  Receipt Date: 20041119
  Transmission Date: 20050727
  Serious: No
  Sender: FDA-Public Use
  Company Number: 234232K04USA

PATIENT
  Age: 48 Year
  Sex: Female

DRUGS (4)
  1. REBIF [Suspect]
     Indication: MULTIPLE SCLEROSIS
     Dosage: 44 MCG, 3 IN 1 WEEKS, SUBCUTANEOUS
     Route: 058
     Dates: start: 20040628
  2. FIORINAL [Concomitant]
  3. NORTRIPTYLINE HCL [Concomitant]
  4. EFFEXOR [Concomitant]

REACTIONS (21)
  - ANOREXIA [None]
  - BALANCE DISORDER [None]
  - COORDINATION ABNORMAL [None]
  - DECREASED APPETITE [None]
  - DRY MOUTH [None]
  - FEELING HOT [None]
  - FEELING OF BODY TEMPERATURE CHANGE [None]
  - HEADACHE [None]
  - HYPERTONIA [None]
  - HYPOTENSION [None]
  - INJECTION SITE HAEMORRHAGE [None]
  - JOINT STIFFNESS [None]
  - KIDNEY INFECTION [None]
  - LEUKOPENIA [None]
  - MIGRAINE [None]
  - MUSCLE TIGHTNESS [None]
  - MUSCULAR WEAKNESS [None]
  - MUSCULOSKELETAL STIFFNESS [None]
  - NEPHRITIS [None]
  - OSTEOARTHRITIS [None]
  - WHITE BLOOD CELL COUNT DECREASED [None]
